FAERS Safety Report 5001643-7 (Version None)
Quarter: 2006Q2

REPORT INFORMATION
  Report Type: 
  Country: None (occurrence: None)
  Receive Date: 20060515
  Receipt Date: 20060501
  Transmission Date: 20061013
  Serious: Yes (Other)
  Sender: FDA-Public Use
  Company Number: PHBS2006US06908

PATIENT
  Age: 75 Year
  Sex: Female

DRUGS (1)
  1. AREDIA [Suspect]
     Indication: MULTIPLE MYELOMA
     Route: 042

REACTIONS (5)
  - ACTINOMYCOSIS [None]
  - BONE DISORDER [None]
  - INFECTION [None]
  - OSTEONECROSIS [None]
  - SEQUESTRECTOMY [None]
